FAERS Safety Report 24240900 (Version 2)
Quarter: 2024Q3

REPORT INFORMATION
  Report Type: Report from Study
  Country: US (occurrence: US)
  Receive Date: 20240823
  Receipt Date: 20240830
  Transmission Date: 20241017
  Serious: No
  Sender: BIOGEN
  Company Number: US-BIOGEN-2024BI01278809

PATIENT
  Sex: Female

DRUGS (1)
  1. ZURZUVAE [Suspect]
     Active Substance: ZURANOLONE
     Indication: Perinatal depression
     Route: 050
     Dates: start: 20240817

REACTIONS (8)
  - Heavy menstrual bleeding [Unknown]
  - Headache [Unknown]
  - Vomiting [Unknown]
  - Anger [Unknown]
  - Irritability [Unknown]
  - Dizziness [Unknown]
  - Somnolence [Unknown]
  - Nausea [Unknown]
